FAERS Safety Report 24333301 (Version 2)
Quarter: 2025Q3

REPORT INFORMATION
  Report Type: Spontaneous
  Country: US (occurrence: US)
  Receive Date: 20240918
  Receipt Date: 20250814
  Transmission Date: 20251020
  Serious: No
  Sender: PFIZER
  Company Number: US-PFIZER INC-202400256044

PATIENT
  Age: 24 Year

DRUGS (1)
  1. VELSIPITY [Suspect]
     Active Substance: ETRASIMOD ARGININE

REACTIONS (1)
  - Malaise [Unknown]

NARRATIVE: CASE EVENT DATE: 20240912
